FAERS Safety Report 20757901 (Version 1)
Quarter: 2022Q2

REPORT INFORMATION
  Report Type: Spontaneous
  Country: US (occurrence: None)
  Receive Date: 20220426
  Receipt Date: 20220426
  Transmission Date: 20220721
  Serious: Yes (Other)
  Sender: FDA-Public Use
  Company Number: None

PATIENT
  Age: 86 Year
  Sex: Male
  Weight: 90 kg

DRUGS (4)
  1. EUCALYPTOL\MENTHOL\METHYL SALICYLATE\THYMOL [Suspect]
     Active Substance: EUCALYPTOL\MENTHOL\METHYL SALICYLATE\THYMOL
     Indication: Dental cleaning
     Dates: start: 20220418, end: 20220419
  2. LOSARTAN [Concomitant]
     Active Substance: LOSARTAN
  3. HYDROCHLOROTHIAZIDE [Concomitant]
     Active Substance: HYDROCHLOROTHIAZIDE
  4. Omoparazole [Concomitant]

REACTIONS (5)
  - Oral discomfort [None]
  - Oral pain [None]
  - Mucosal disorder [None]
  - Lip swelling [None]
  - Liquid product physical issue [None]

NARRATIVE: CASE EVENT DATE: 20220418
